FAERS Safety Report 12729081 (Version 1)
Quarter: 2016Q3

REPORT INFORMATION
  Report Type: Spontaneous
  Country: MX (occurrence: MX)
  Receive Date: 20160909
  Receipt Date: 20160909
  Transmission Date: 20161109
  Serious: Yes (Other)
  Sender: FDA-Public Use
  Company Number: MX-SA-2016SA166343

PATIENT
  Age: 82 Year
  Sex: Female
  Weight: 48 kg

DRUGS (2)
  1. COAPROVEL [Suspect]
     Active Substance: HYDROCHLOROTHIAZIDE\IRBESARTAN
     Indication: HYPERTENSION
     Dosage: STRENGTH: (IRBESARTAN + HYDROCHLOROTHIAZIDE) (300 MG + 12.5 MG)
     Route: 048
     Dates: start: 2006
  2. LEXOTAN [Concomitant]
     Active Substance: BROMAZEPAM
     Indication: FEELING OF RELAXATION
     Route: 048
     Dates: start: 2011

REACTIONS (1)
  - Arrhythmia [Not Recovered/Not Resolved]

NARRATIVE: CASE EVENT DATE: 201601
